FAERS Safety Report 9010724 (Version 1)
Quarter: 2013Q1

REPORT INFORMATION
  Report Type: Spontaneous
  Country: US (occurrence: US)
  Receive Date: 20130109
  Receipt Date: 20130109
  Transmission Date: 20140127
  Serious: Yes (Hospitalization)
  Sender: FDA-Public Use
  Company Number: US-BAYER-2013-001522

PATIENT
  Age: 32 Year
  Sex: Female

DRUGS (7)
  1. YASMIN [Suspect]
  2. ACIPHEX [Concomitant]
     Dosage: 20 MG, UNK
  3. SKELAXIN [Concomitant]
     Dosage: 800 MG, UNK
  4. SKELAXIN [Concomitant]
     Dosage: 400 MG, UNK
  5. PREDNISONE [Concomitant]
     Dosage: 10 MG, UNK
  6. KEFLEX [Concomitant]
  7. SYNTHROID [Concomitant]

REACTIONS (1)
  - Deep vein thrombosis [Recovered/Resolved]
